FAERS Safety Report 5103474-6 (Version None)
Quarter: 2006Q3

REPORT INFORMATION
  Report Type: 
  Country: None (occurrence: None)
  Receive Date: 20060908
  Receipt Date: 20060828
  Transmission Date: 20061208
  Serious: Yes (Disabling, Other)
  Sender: FDA-Public Use
  Company Number: 2006097022

PATIENT
  Sex: Female
  Weight: 79.8331 kg

DRUGS (5)
  1. LIPITOR [Suspect]
     Indication: BLOOD CHOLESTEROL INCREASED
     Dosage: 10 MG (10 MG, 1 IN 1 D) ORAL
     Route: 048
  2. IBANDRONATE SODIUM [Concomitant]
  3. GABAPENTIN [Concomitant]
  4. QUININE SULFATE [Concomitant]
  5. MUSCLE RELAXANTS [Concomitant]

REACTIONS (4)
  - MOVEMENT DISORDER [None]
  - MUSCLE SPASMS [None]
  - OEDEMA PERIPHERAL [None]
  - PAIN [None]
